FAERS Safety Report 7967154-1 (Version None)
Quarter: 2011Q4

REPORT INFORMATION
  Report Type: 
  Country: None (occurrence: None)
  Receive Date: 20111206
  Receipt Date: 20111122
  Transmission Date: 20120403
  Serious: Yes (Hospitalization, Other)
  Sender: FDA-Public Use
  Company Number: ES-DEXPHARM-20111878

PATIENT
  Age: 84 Year
  Sex: Female

DRUGS (1)
  1. OMEPRAZOLE [Suspect]
     Indication: DYSPEPSIA

REACTIONS (10)
  - ANTINUCLEAR ANTIBODY POSITIVE [None]
  - BLOOD BILIRUBIN INCREASED [None]
  - TRANSAMINASES INCREASED [None]
  - JAUNDICE [None]
  - AUTOIMMUNE HEPATITIS [None]
  - ASTHENIA [None]
  - INTERNATIONAL NORMALISED RATIO INCREASED [None]
  - CHROMATURIA [None]
  - HLA MARKER STUDY POSITIVE [None]
  - LIVER INJURY [None]
